FAERS Safety Report 13695847 (Version 2)
Quarter: 2017Q3

REPORT INFORMATION
  Report Type: Report from Study
  Country: None (occurrence: CA)
  Receive Date: 20170627
  Receipt Date: 20170814
  Transmission Date: 20171127
  Serious: Yes (Death)
  Sender: FDA-Public Use
  Company Number: CA-ABBVIE-17P-028-2020001-00

PATIENT
  Sex: Male
  Weight: 84.9 kg

DRUGS (5)
  1. FLUTAMIDE. [Concomitant]
     Active Substance: FLUTAMIDE
     Indication: PRODUCT USED FOR UNKNOWN INDICATION
  2. COVERSYL [Concomitant]
     Active Substance: PERINDOPRIL
     Indication: PRODUCT USED FOR UNKNOWN INDICATION
  3. LUPRON DEPOT [Suspect]
     Active Substance: LEUPROLIDE ACETATE
     Indication: PROSTATE CANCER
     Route: 030
     Dates: start: 20101124, end: 20170411
  4. ASA [Concomitant]
     Active Substance: ASPIRIN
     Indication: PRODUCT USED FOR UNKNOWN INDICATION
  5. CRESTOR [Concomitant]
     Active Substance: ROSUVASTATIN CALCIUM
     Indication: PRODUCT USED FOR UNKNOWN INDICATION

REACTIONS (1)
  - Disease progression [Fatal]
